FAERS Safety Report 6651448-6 (Version None)
Quarter: 2010Q1

REPORT INFORMATION
  Report Type: 
  Country: None (occurrence: None)
  Receive Date: 20100325
  Receipt Date: 20100223
  Transmission Date: 20100710
  Serious: Yes (Death, Life-Threatening, Other)
  Sender: FDA-Public Use
  Company Number: PT-ROCHE-681981

PATIENT
  Age: 41 Year
  Sex: Female
  Weight: 57 kg

DRUGS (21)
  1. BEVACIZUMAB [Suspect]
     Indication: LUNG ADENOCARCINOMA METASTATIC
     Dosage: CYCLE1. DOSE:427.5,D1/D8
     Route: 042
     Dates: start: 20071217, end: 20071226
  2. BEVACIZUMAB [Suspect]
     Dosage: CYCLE 2. DOSE:427.5. D1/D8
     Route: 042
     Dates: start: 20080108, end: 20080115
  3. BEVACIZUMAB [Suspect]
     Dosage: CYCLE3. DOSE:427.5, D1/D8
     Route: 042
     Dates: start: 20080124, end: 20080208
  4. BEVACIZUMAB [Suspect]
     Dosage: CYCLE 4. DOSE:427.5, D1/D8
     Route: 042
     Dates: start: 20080220, end: 20080228
  5. BEVACIZUMAB [Suspect]
     Dosage: CYCLE 5 DOSE:427.5, D1/D8, STOPPED DATE:ND
     Route: 042
     Dates: start: 20080317
  6. BEVACIZUMAB [Suspect]
     Dosage: CYCLE 6. DOSE:427.5, D1/D8
     Route: 042
     Dates: start: 20080408, end: 20080619
  7. ERLOTINIB [Suspect]
     Indication: LUNG ADENOCARCINOMA METASTATIC
     Dosage: FREQUENCY: PER DAY
     Route: 048
     Dates: start: 20090109, end: 20090723
  8. CARBOPLATIN [Concomitant]
     Dosage: CYCLE 1. DOSE:560, D1/D8,
     Dates: start: 20071217, end: 20071226
  9. CARBOPLATIN [Concomitant]
     Dosage: CYCLE 2. DOSE:540,  D1/D8
     Dates: start: 20080108, end: 20080115
  10. CARBOPLATIN [Concomitant]
     Dosage: CYCLE 3. DOSE:550,  D1/D8
     Dates: start: 20080124, end: 20080208
  11. CARBOPLATIN [Concomitant]
     Dosage: CYCLE 4. DOSE:530,  D1/D8
     Dates: start: 20080220, end: 20080228
  12. CARBOPLATIN [Concomitant]
     Dosage: CYCLE 5. DOSE:600,  D1/D8
     Dates: start: 20080317
  13. CARBOPLATIN [Concomitant]
     Dosage: CYCLE 5. DOSE:600,  D1/D8
     Dates: start: 20080408, end: 20080415
  14. GEMCITABINE HCL [Concomitant]
     Dosage: CYCLE1. DOSE:1600, D1/D8
     Route: 042
     Dates: start: 20071217, end: 20081226
  15. GEMCITABINE HCL [Concomitant]
     Dosage: CYCLE 2. DOSE:1600, D1/D8
     Route: 042
     Dates: start: 20080108, end: 20080115
  16. GEMCITABINE HCL [Concomitant]
     Dosage: CYCLE 3. DOSE:1600, D1/D8
     Route: 042
     Dates: start: 20080124, end: 20080208
  17. GEMCITABINE HCL [Concomitant]
     Dosage: CYCLE 4. DOSE:1600, D1/D8
     Route: 042
     Dates: start: 20080220, end: 20080228
  18. GEMCITABINE HCL [Concomitant]
     Dosage: CYCLE 5. DOSE:1600, D1/D8, STOPPED :ND
     Route: 042
     Dates: start: 20080317
  19. GEMCITABINE HCL [Concomitant]
     Dosage: CYCLE 6. DOSE:1600, D1/D8, STOPPED DATE: ND
     Route: 042
     Dates: start: 20080408, end: 20080415
  20. PAMIDRONATE DISODIUM [Concomitant]
     Route: 042
  21. PEMETREXED [Concomitant]
     Route: 042
     Dates: start: 20080715, end: 20080717

REACTIONS (5)
  - BLEPHARITIS [None]
  - CEREBROVASCULAR ACCIDENT [None]
  - GROWTH OF EYELASHES [None]
  - MALIGNANT NEOPLASM PROGRESSION [None]
  - RASH [None]
